FAERS Safety Report 19079107 (Version 1)
Quarter: 2021Q1

REPORT INFORMATION
  Report Type: Spontaneous
  Country: NL (occurrence: NL)
  Receive Date: 20210331
  Receipt Date: 20210331
  Transmission Date: 20210420
  Serious: Yes (Congenital Anomaly)
  Sender: FDA-Public Use
  Company Number: NL-TEVA-2021-NL-1895292

PATIENT
  Age: 0 Week

DRUGS (2)
  1. CALCIUMCARB/COLECALC KAUWTB 2,5G/800IE (1000MG CA) / CALCI CHEW D3 KAU [Suspect]
     Active Substance: CALCIUM CARBONATE\CHOLECALCIFEROL
     Indication: SYSTEMIC MASTOCYTOSIS
     Dosage: 1 DOSAGE FORMS DAILY; THERAPY END DATE : ASKED BUT UNKNOWN
     Dates: start: 201205
  2. LEVOCETIRIZINE TABLET FO 5MG / BRAND NAME NOT SPECIFIED [Suspect]
     Active Substance: LEVOCETIRIZINE
     Indication: SYSTEMIC MASTOCYTOSIS
     Dosage: 2 DOSAGE FORMS DAILY; THERAPY END DATE : ASKED BUT UNKNOWN
     Dates: start: 201205

REACTIONS (2)
  - Maternal exposure during pregnancy [Unknown]
  - Femur-fibula-ulna complex [Not Recovered/Not Resolved]

NARRATIVE: CASE EVENT DATE: 20210307
